FAERS Safety Report 7515298-0 (Version None)
Quarter: 2011Q2

REPORT INFORMATION
  Report Type: 
  Country: None (occurrence: None)
  Receive Date: 20110601
  Receipt Date: 20110517
  Transmission Date: 20111010
  Serious: Yes (Hospitalization, Disabling, Other)
  Sender: FDA-Public Use
  Company Number: US-CELGENEUS-163-21880-11052326

PATIENT
  Sex: Male
  Weight: 124 kg

DRUGS (3)
  1. ASPIRIN [Concomitant]
     Dosage: 81 MILLIGRAM
     Route: 065
  2. VELCADE [Suspect]
     Indication: MANTLE CELL LYMPHOMA
     Route: 065
  3. REVLIMID [Suspect]
     Indication: MANTLE CELL LYMPHOMA
     Dosage: 20 MILLIGRAM
     Route: 048
     Dates: start: 20110414, end: 20110511

REACTIONS (2)
  - CHOROIDAL DETACHMENT [None]
  - CHOROIDAL EFFUSION [None]
